FAERS Safety Report 21638795 (Version 3)
Quarter: 2023Q2

REPORT INFORMATION
  Report Type: Report from Study
  Country: US (occurrence: US)
  Receive Date: 20221124
  Receipt Date: 20230522
  Transmission Date: 20230721
  Serious: No
  Sender: FDA-Public Use
  Company Number: US-ABBVIE-4161864

PATIENT
  Sex: Female

DRUGS (5)
  1. HUMIRA [Suspect]
     Active Substance: ADALIMUMAB
     Indication: Rheumatoid arthritis
     Route: 058
     Dates: start: 20211130
  2. HUMIRA [Suspect]
     Active Substance: ADALIMUMAB
     Route: 058
  3. PFIZER-BIONTECH COVID-19 VACCINE [Concomitant]
     Active Substance: TOZINAMERAN
     Indication: COVID-19 immunisation
     Dosage: ONE IN ONCE FREQUENCY ?FIRST DOSE
     Route: 030
     Dates: start: 202104, end: 202104
  4. PFIZER-BIONTECH COVID-19 VACCINE [Concomitant]
     Active Substance: TOZINAMERAN
     Indication: COVID-19 immunisation
     Dosage: ONE IN ONCE FREQUENCY ?SECOND DOSE
     Route: 030
     Dates: start: 202104, end: 202104
  5. PFIZER-BIONTECH COVID-19 VACCINE [Concomitant]
     Active Substance: TOZINAMERAN
     Indication: COVID-19 immunisation
     Dosage: ONE IN ONCE FREQUENCY ?THIRD BOOSTER DOSE
     Route: 030
     Dates: start: 202110, end: 202110

REACTIONS (6)
  - Cyst [Unknown]
  - Arthralgia [Recovering/Resolving]
  - Joint stiffness [Unknown]
  - Inflammatory marker increased [Unknown]
  - Pain in extremity [Unknown]
  - Hypoaesthesia [Unknown]
